FAERS Safety Report 6076428-3 (Version None)
Quarter: 2009Q1

REPORT INFORMATION
  Report Type: 
  Country: None (occurrence: None)
  Receive Date: 20090213
  Receipt Date: 20090202
  Transmission Date: 20090719
  Serious: Yes (Hospitalization, Other)
  Sender: FDA-Public Use
  Company Number: JP-JNJFOC-20090201207

PATIENT
  Sex: Male
  Weight: 62 kg

DRUGS (6)
  1. LEUSTATIN [Suspect]
     Indication: HAIRY CELL LEUKAEMIA
     Route: 041
  2. ITRIZOLE [Suspect]
     Indication: DRUG USE FOR UNKNOWN INDICATION
     Route: 065
  3. CIPROXAN [Suspect]
     Indication: PYREXIA
     Route: 065
  4. BAKTAR [Suspect]
     Indication: DRUG USE FOR UNKNOWN INDICATION
     Route: 048
  5. NEU-UP [Suspect]
     Indication: DRUG USE FOR UNKNOWN INDICATION
     Route: 041
  6. MAGNESIUM OXIDE [Suspect]
     Indication: DRUG USE FOR UNKNOWN INDICATION
     Route: 048

REACTIONS (7)
  - ANAEMIA [None]
  - DERMATITIS BULLOUS [None]
  - FEBRILE NEUTROPENIA [None]
  - HEPATIC FUNCTION ABNORMAL [None]
  - HERPES ZOSTER [None]
  - THROMBOCYTOPENIA [None]
  - TOXIC SKIN ERUPTION [None]
